FAERS Safety Report 7341162-6 (Version None)
Quarter: 2011Q1

REPORT INFORMATION
  Report Type: 
  Country: None (occurrence: None)
  Receive Date: 20110309
  Receipt Date: 20110301
  Transmission Date: 20110831
  Serious: Yes (Hospitalization)
  Sender: FDA-Public Use
  Company Number: B0668356A

PATIENT
  Sex: Male

DRUGS (6)
  1. HEAVY MAGNESIUM OXIDE [Concomitant]
     Indication: CONSTIPATION
     Dosage: 3G PER DAY
     Route: 048
  2. DEPAKENE [Concomitant]
     Dosage: 1400MG PER DAY
     Route: 048
  3. MYSTAN [Concomitant]
     Dosage: 20MG PER DAY
     Route: 048
  4. LAMICTAL [Suspect]
     Indication: EPILEPSY
     Route: 048
     Dates: start: 20100705, end: 20100802
  5. ALEVIATIN [Concomitant]
     Dosage: 160MG PER DAY
     Route: 048
  6. ADEROXAL [Concomitant]
     Dosage: 80MGS PER DAY
     Route: 048

REACTIONS (17)
  - PYREXIA [None]
  - DECREASED APPETITE [None]
  - CONVULSION [None]
  - LIVER DISORDER [None]
  - HEPATITIS ACUTE [None]
  - STATUS EPILEPTICUS [None]
  - RASH [None]
  - HYPERTHERMIA [None]
  - C-REACTIVE PROTEIN INCREASED [None]
  - BLOOD LACTATE DEHYDROGENASE INCREASED [None]
  - ASPARTATE AMINOTRANSFERASE INCREASED [None]
  - GRAND MAL CONVULSION [None]
  - BLOOD ALKALINE PHOSPHATASE INCREASED [None]
  - EOSINOPHIL PERCENTAGE INCREASED [None]
  - BLOOD ALBUMIN DECREASED [None]
  - ALANINE AMINOTRANSFERASE INCREASED [None]
  - GAMMA-GLUTAMYLTRANSFERASE INCREASED [None]
